FAERS Safety Report 9546491 (Version 1)
Quarter: 2013Q3

REPORT INFORMATION
  Report Type: Spontaneous
  Country: US (occurrence: US)
  Receive Date: 20130923
  Receipt Date: 20130923
  Transmission Date: 20140515
  Serious: No
  Sender: FDA-Public Use
  Company Number: US-ALLERGAN-1306350US

PATIENT
  Age: 74 Year
  Sex: Female

DRUGS (2)
  1. REFRESH PLUS [Suspect]
     Indication: PRODUCT USED FOR UNKNOWN INDICATION
  2. ACUVAIL [Suspect]
     Indication: PRODUCT USED FOR UNKNOWN INDICATION

REACTIONS (2)
  - Wrong drug administered [Unknown]
  - Eye irritation [Recovered/Resolved]
